FAERS Safety Report 4676693-0 (Version None)
Quarter: 2005Q2

REPORT INFORMATION
  Report Type: 
  Country: None (occurrence: None)
  Receive Date: 20050527
  Receipt Date: 20050524
  Transmission Date: 20051028
  Serious: Yes (Life-Threatening, Other)
  Sender: FDA-Public Use
  Company Number: 2005AP03023

PATIENT
  Age: 68 Year
  Sex: Female

DRUGS (1)
  1. ZESTRIL [Suspect]
     Route: 048
     Dates: start: 20030101, end: 20030701

REACTIONS (3)
  - LIVER DISORDER [None]
  - RENAL DISORDER [None]
  - TOXIC EPIDERMAL NECROLYSIS [None]
